FAERS Safety Report 10239153 (Version 2)
Quarter: 2014Q2

REPORT INFORMATION
  Report Type: Spontaneous
  Country: JP (occurrence: JP)
  Receive Date: 20140616
  Receipt Date: 20140630
  Transmission Date: 20141212
  Serious: Yes (Other)
  Sender: FDA-Public Use
  Company Number: JP-US-EMD SERONO, INC.-7297099

PATIENT
  Age: 2 Year
  Sex: Male

DRUGS (1)
  1. SAIZEN [Suspect]
     Indication: FAILURE TO THRIVE
     Route: 065

REACTIONS (1)
  - Hepatoblastoma [Unknown]
